FAERS Safety Report 16372124 (Version 12)
Quarter: 2020Q1

REPORT INFORMATION
  Report Type: Spontaneous
  Country: IL (occurrence: IL)
  Receive Date: 20190530
  Receipt Date: 20200325
  Transmission Date: 20200409
  Serious: Yes (Hospitalization, Other)
  Sender: FDA-Public Use
  Company Number: IL-PFIZER INC-2019086542

PATIENT
  Age: 78 Year
  Sex: Female

DRUGS (1)
  1. ELELYSO [Suspect]
     Active Substance: TALIGLUCERASE ALFA
     Indication: GAUCHER^S DISEASE
     Dosage: 1600 UNITS/ 1400 UNITS PER INFUSION TWICE A MONTH, ALTERNATELY
     Route: 042

REACTIONS (11)
  - Head injury [Not Recovered/Not Resolved]
  - Alopecia [Unknown]
  - Blood sodium decreased [Recovered/Resolved]
  - Injury [Unknown]
  - Malaise [Unknown]
  - Inappropriate schedule of product administration [Unknown]
  - Rib fracture [Unknown]
  - Pelvic fracture [Not Recovered/Not Resolved]
  - Fall [Not Recovered/Not Resolved]
  - Asthenia [Unknown]
  - Hypertension [Unknown]

NARRATIVE: CASE EVENT DATE: 201904
